FAERS Safety Report 7645688-7 (Version None)
Quarter: 2011Q3

REPORT INFORMATION
  Report Type: 
  Country: None (occurrence: None)
  Receive Date: 20110729
  Receipt Date: 20110720
  Transmission Date: 20111222
  Serious: Yes (Death)
  Sender: FDA-Public Use
  Company Number: US-MYLANLABS-2011S1015162

PATIENT
  Age: 20 Year
  Sex: Male

DRUGS (2)
  1. DEXTROMETHORPHAN HYDROBROMIDE [Suspect]
  2. SELEGILINE HCL [Suspect]
     Indication: DEPRESSION
     Route: 048

REACTIONS (3)
  - DRUG ABUSE [None]
  - DRUG INTERACTION [None]
  - ATRIAL FIBRILLATION [None]
